FAERS Safety Report 6261643-6 (Version None)
Quarter: 2009Q3

REPORT INFORMATION
  Report Type: 
  Country: None (occurrence: None)
  Receive Date: 20090709
  Receipt Date: 20090629
  Transmission Date: 20100115
  Serious: Yes (Hospitalization)
  Sender: FDA-Public Use
  Company Number: US-NOVOPROD-288861

PATIENT
  Age: 55 Year
  Sex: Male

DRUGS (2)
  1. NOVOLOG [Suspect]
     Indication: TYPE 2 DIABETES MELLITUS
     Dosage: 15-20 UNITS AFTER EVERY MEAL
     Route: 058
     Dates: start: 20090501
  2. LANTUS [Concomitant]
     Indication: TYPE 2 DIABETES MELLITUS
     Dosage: 75 IU, QD IN EVENING
     Route: 058

REACTIONS (2)
  - BLOOD GLUCOSE INCREASED [None]
  - RENAL FAILURE [None]
